FAERS Safety Report 8988292 (Version 1)
Quarter: 2012Q4

REPORT INFORMATION
  Report Type: 
  Country: US (occurrence: US)
  Receive Date: 20121227
  Receipt Date: 20121227
  Transmission Date: 20130627
  Serious: Yes (Hospitalization)
  Sender: FDA-Public Use
  Company Number: US-ELI_LILLY_AND_COMPANY-US201212004625

PATIENT
  Age: 74 Year
  Sex: Female

DRUGS (8)
  1. FORTEO [Suspect]
     Indication: OSTEOPOROSIS
     Dosage: 20 ug, qd
     Dates: start: 201206
  2. FORTEO [Suspect]
     Dosage: 20 ug, qd
  3. DILTIAZEM [Concomitant]
  4. OMEPRAZOLE [Concomitant]
  5. LISINOPRIL [Concomitant]
  6. TRIAMTERENE [Concomitant]
  7. VITAMIN D [Concomitant]
     Dosage: 50000 IU, monthly (1/M)
  8. DICLOFENAC [Concomitant]

REACTIONS (4)
  - Cholecystectomy [Unknown]
  - Fall [Unknown]
  - Contusion [Unknown]
  - Insomnia [Unknown]
